FAERS Safety Report 16314631 (Version 1)
Quarter: 2019Q2

REPORT INFORMATION
  Report Type: Spontaneous
  Country: US (occurrence: US)
  Receive Date: 20190515
  Receipt Date: 20190515
  Transmission Date: 20190711
  Serious: Yes (Hospitalization)
  Sender: FDA-Public Use
  Company Number: US-PARI RESPIRATORY EQUIPMENT, INC.-2019PAR00034

PATIENT
  Sex: Male
  Weight: 11.88 kg

DRUGS (3)
  1. KITABIS PAK [Suspect]
     Active Substance: TOBRAMYCIN
     Indication: ILL-DEFINED DISORDER
  2. KITABIS PAK [Suspect]
     Active Substance: TOBRAMYCIN
     Indication: CYSTIC FIBROSIS
     Dosage: 5 ML, 2X/DAY ^CONTINUOUSLY^
     Route: 055
  3. KITABIS PAK [Suspect]
     Active Substance: TOBRAMYCIN
     Indication: PREMATURE BABY

REACTIONS (3)
  - Jejunostomy [Recovered/Resolved]
  - Infective pulmonary exacerbation of cystic fibrosis [Unknown]
  - Product use issue [Unknown]

NARRATIVE: CASE EVENT DATE: 2019
